FAERS Safety Report 15518250 (Version 2)
Quarter: 2019Q1

REPORT INFORMATION
  Report Type: Report from Study
  Country: ES (occurrence: ES)
  Receive Date: 20181017
  Receipt Date: 20190122
  Transmission Date: 20190417
  Serious: Yes (Death, Hospitalization, Other)
  Sender: FDA-Public Use
  Company Number: ES-PFIZER INC-2018419040

PATIENT
  Age: 50 Year
  Sex: Male
  Weight: 73.5 kg

DRUGS (15)
  1. DINUTUXIMAB [Suspect]
     Active Substance: DINUTUXIMAB
     Dosage: UNK
     Route: 041
  2. NYSTATIN. [Concomitant]
     Active Substance: NYSTATIN
  3. ONDANSETRON [Concomitant]
     Active Substance: ONDANSETRON
  4. PARACETAMOL [Concomitant]
     Active Substance: ACETAMINOPHEN
  5. IRINOTECAN HCL [Suspect]
     Active Substance: IRINOTECAN HYDROCHLORIDE
     Indication: SMALL CELL LUNG CANCER
     Dosage: 350 MG/M2, TOTAL DAILY DOSE, CYCLE 1
     Route: 041
     Dates: start: 20180809
  6. IRINOTECAN HCL [Suspect]
     Active Substance: IRINOTECAN HYDROCHLORIDE
     Dosage: UNK
     Route: 041
  7. OMEPRAZOLE. [Concomitant]
     Active Substance: OMEPRAZOLE
  8. MORPHINE [Concomitant]
     Active Substance: MORPHINE
  9. DEXAMETHASONE. [Concomitant]
     Active Substance: DEXAMETHASONE
     Dosage: UNK
     Dates: start: 2018, end: 201808
  10. TORASEMIDE [Concomitant]
     Active Substance: TORSEMIDE
  11. IRINOTECAN HCL [Suspect]
     Active Substance: IRINOTECAN HYDROCHLORIDE
     Dosage: UNK
     Route: 041
  12. DINUTUXIMAB [Suspect]
     Active Substance: DINUTUXIMAB
     Indication: SMALL CELL LUNG CANCER
     Dosage: 16 MG/M2, TOTAL DAILY DOSE, CYCLE 1
     Route: 041
     Dates: start: 20180809
  13. GLUCOSE, SODIUM CHLORIDE [Concomitant]
  14. IBUPROFEN. [Concomitant]
     Active Substance: IBUPROFEN
  15. DEXCHLORPHENIRAMINE [Concomitant]
     Active Substance: DEXCHLORPHENIRAMINE

REACTIONS (2)
  - Dyspnoea [Fatal]
  - Neoplasm progression [Fatal]

NARRATIVE: CASE EVENT DATE: 20180819
